FAERS Safety Report 7945033-3 (Version None)
Quarter: 2011Q4

REPORT INFORMATION
  Report Type: 
  Country: None (occurrence: None)
  Receive Date: 20111129
  Receipt Date: 20110318
  Transmission Date: 20120403
  Serious: No
  Sender: FDA-Public Use
  Company Number: US-MYLANLABS-2011S1006012

PATIENT
  Age: 78 Year
  Sex: Male
  Weight: 82.1 kg

DRUGS (6)
  1. AMBIEN [Concomitant]
  2. COREG [Concomitant]
  3. PROMETHAZINE [Concomitant]
  4. AMIODARONE HCL [Suspect]
     Indication: ARRHYTHMIA
     Route: 042
     Dates: start: 20110318
  5. ACETAMINOPHEN [Concomitant]
  6. CARVEDILOL [Concomitant]

REACTIONS (1)
  - INJECTION SITE EXTRAVASATION [None]
